FAERS Safety Report 10761668 (Version 1)
Quarter: 2015Q1

REPORT INFORMATION
  Report Type: Spontaneous
  Country: US (occurrence: None)
  Receive Date: 20150128
  Receipt Date: 20150128
  Transmission Date: 20150721
  Serious: Yes (Other)
  Sender: FDA-Public Use
  Company Number: 1456578

PATIENT
  Age: 50 Year
  Sex: Male

DRUGS (18)
  1. ZOLPIDEM [Concomitant]
     Active Substance: ZOLPIDEM\ZOLPIDEM TARTRATE
  2. BENZATROPINE (BENZTROPINE MESILATE) [Concomitant]
  3. TREABDA (BEBDANYSTINE) [Concomitant]
  4. RITUXAN [Suspect]
     Active Substance: RITUXIMAB
     Indication: B-CELL LYMPHOMA
     Dosage: 375 MG/M2, 1 IN 2, INTRAVENOUS (NOT OTHERWISE SPECIFIED)?
     Route: 042
     Dates: start: 20130614, end: 20140625
  5. LORAZEPAM. [Concomitant]
     Active Substance: LORAZEPAM
  6. SPIRIVA (TIOTROPIUM BROMIDE) [Concomitant]
  7. QUETIAPINE (QUETIAPINE) [Concomitant]
     Active Substance: QUETIAPINE
  8. HYDROXYZINE [Concomitant]
     Active Substance: HYDROXYZINE\HYDROXYZINE HYDROCHLORIDE
  9. OMEPRAZOLE. [Concomitant]
     Active Substance: OMEPRAZOLE
  10. BUSPIRONE [Concomitant]
     Active Substance: BUSPIRONE HYDROCHLORIDE
  11. ONANSETRON [Concomitant]
  12. NIACIN (NICOTINIC ACID) [Concomitant]
  13. LEVOTHYROXINE SODIUM. [Concomitant]
     Active Substance: LEVOTHYROXINE SODIUM
  14. ADVAIR (FLUTICASONE PROPIONATE, SALMETEROL XINAFOLATE) [Concomitant]
  15. RITUXAN [Suspect]
     Active Substance: RITUXIMAB
     Indication: EXTRANODAL MARGINAL ZONE B-CELL LYMPHOMA (MALT TYPE)
     Dosage: 375 MG/M2, 1 IN 2, INTRAVENOUS (NOT OTHERWISE SPECIFIED)?
     Route: 042
     Dates: start: 20130614, end: 20140625
  16. BENADRYL (UNITED STATES) (DIPHENHYDRAMINE HYDROCHLORIDE) [Concomitant]
  17. RISPERIDONE. [Concomitant]
     Active Substance: RISPERIDONE
  18. DIVALPROEX (VALPROATE SEMISODIUM) [Concomitant]
     Active Substance: DIVALPROEX SODIUM

REACTIONS (1)
  - Hepatitis B [None]
